FAERS Safety Report 4683376-X (Version None)
Quarter: 2005Q2

REPORT INFORMATION
  Report Type: 
  Country: None (occurrence: None)
  Receive Date: 20050602
  Receipt Date: 20050405
  Transmission Date: 20051028
  Serious: No
  Sender: FDA-Public Use
  Company Number: 200510692BWH

PATIENT
  Age: 69 Year
  Sex: Male
  Weight: 63.5036 kg

DRUGS (6)
  1. LEVITRA [Suspect]
     Indication: ERECTILE DYSFUNCTION
     Dosage: 5 MG, Q2WK, ORAL
     Route: 048
     Dates: start: 20040801
  2. AMITRIPTYLINE WITH PERPHENAZINE [Concomitant]
  3. CARISOPRODOL [Concomitant]
  4. TEMAZEPAM [Concomitant]
  5. VOLTAREN [Concomitant]
  6. STEROID SHOTS IN RIGHT EYE [Concomitant]

REACTIONS (2)
  - FLUSHING [None]
  - HAIR GROWTH ABNORMAL [None]
